FAERS Safety Report 5512777-2 (Version None)
Quarter: 2007Q4

REPORT INFORMATION
  Report Type: 
  Country: None (occurrence: None)
  Receive Date: 20071112
  Receipt Date: 20071105
  Transmission Date: 20080405
  Serious: Yes (Death)
  Sender: FDA-Public Use
  Company Number: PHBS2007JP17805

PATIENT
  Age: 69 Year
  Sex: Male

DRUGS (6)
  1. ZOMETA [Suspect]
     Indication: METASTASES TO BONE
     Dosage: UNK, UNK
     Route: 042
  2. CISPLATIN [Concomitant]
     Dates: start: 20050401
  3. ETOPOSIDE [Concomitant]
     Dates: start: 20050401
  4. DOCETAXEL [Concomitant]
  5. PACLITAXEL [Concomitant]
     Dates: start: 20060101
  6. RADIATION THERAPY [Concomitant]

REACTIONS (3)
  - DISEASE PROGRESSION [None]
  - HYPOAESTHESIA [None]
  - METASTASES TO LUNG [None]
